FAERS Safety Report 5801302-4 (Version None)
Quarter: 2008Q3

REPORT INFORMATION
  Report Type: 
  Country: None (occurrence: None)
  Receive Date: 20080707
  Receipt Date: 20080623
  Transmission Date: 20090109
  Serious: Yes (Hospitalization)
  Sender: FDA-Public Use
  Company Number: FR-JNJFOC-20080405620

PATIENT
  Sex: Female
  Weight: 39 kg

DRUGS (7)
  1. RISPERDAL CONSTA [Suspect]
     Indication: SCHIZOPHRENIA
     Route: 030
  2. RISPERDAL [Suspect]
     Route: 048
  3. RISPERDAL [Suspect]
     Indication: DELIRIUM
     Route: 048
  4. RISPERDAL [Suspect]
     Indication: SCHIZOPHRENIA
     Route: 048
  5. OXAZEPAM [Concomitant]
     Indication: ANXIETY
     Route: 048
  6. SEROPRAM [Concomitant]
     Indication: DEPRESSION
     Route: 048
  7. LEPTICUR [Concomitant]
     Indication: PARKINSON'S DISEASE
     Route: 048

REACTIONS (5)
  - CONDITION AGGRAVATED [None]
  - DELIRIUM [None]
  - DRUG INEFFECTIVE [None]
  - PARANOIA [None]
  - WEIGHT DECREASED [None]
